FAERS Safety Report 11968707 (Version 1)
Quarter: 2016Q1

REPORT INFORMATION
  Report Type: Spontaneous
  Country: US (occurrence: US)
  Receive Date: 20160128
  Receipt Date: 20160128
  Transmission Date: 20160526
  Serious: Yes (Hospitalization, Other)
  Sender: FDA-Public Use
  Company Number: US-ZYDUS-010023

PATIENT
  Age: 65 Year
  Sex: Male
  Weight: 177 kg

DRUGS (12)
  1. VANCOMYCIN [Concomitant]
     Active Substance: VANCOMYCIN
     Indication: CELLULITIS
     Dosage: 1000 MG, EVERY 12 HOURS
     Route: 042
  2. CEFTAROLINE [Interacting]
     Active Substance: CEFTAROLINE
     Indication: CELLULITIS
     Dosage: 400MG EVERY 12 HOURS
     Route: 042
  3. ZINC [Concomitant]
     Active Substance: ZINC\ZINC CHLORIDE
     Indication: WOUND
     Dosage: 220 MG ONCE DAILY
     Route: 048
  4. METOPROLOL SUCCINATE. [Concomitant]
     Active Substance: METOPROLOL SUCCINATE
     Indication: HYPERTENSION
     Dosage: 50 MG ORALLY ONCE DAILY
     Route: 048
  5. TOLTERODINE/TOLTERODINE L-TARTRATE [Concomitant]
     Indication: HYPERTONIC BLADDER
     Dosage: 4 MG, ORALLY, ONCE DAILY
     Route: 048
  6. SULFADIAZINE. [Concomitant]
     Active Substance: SULFADIAZINE
     Indication: SKIN ULCER
     Dosage: 1%, TWICE DAILY
  7. CODEINE/PARACETAMOL [Concomitant]
     Indication: ARTHRITIS
     Dosage: 300 MG/30 MG ORALLY EVERY SIX TO EIGHT HOURS AS NEEDED.
     Route: 048
  8. CADEXOMER IODINE [Concomitant]
     Active Substance: CADEXOMER IODINE
     Indication: SKIN ULCER
     Dosage: 0.9% DAILY
  9. IPRATROPIUM [Concomitant]
     Active Substance: IPRATROPIUM
     Indication: ASTHMA
     Dosage: TWO PUFFS EVERY SIX HOURS AS NEEDED.
  10. ASCORBIC ACID. [Concomitant]
     Active Substance: ASCORBIC ACID
     Indication: PRODUCT USED FOR UNKNOWN INDICATION
     Dosage: 250 MG ONCE DAILY
     Route: 048
  11. WARFARIN [Suspect]
     Active Substance: WARFARIN
     Indication: THROMBOSIS PROPHYLAXIS
     Dosage: 7.5MG DAILY
     Route: 048
  12. DILTIAZEM [Concomitant]
     Active Substance: DILTIAZEM
     Indication: PRODUCT USED FOR UNKNOWN INDICATION
     Dosage: 180 MG ONCE DAILY
     Route: 048

REACTIONS (4)
  - Acute kidney injury [Unknown]
  - Drug interaction [Unknown]
  - International normalised ratio increased [Recovered/Resolved]
  - Renal tubular necrosis [Unknown]
